FAERS Safety Report 4681089-1 (Version None)
Quarter: 2005Q2

REPORT INFORMATION
  Report Type: 
  Country: None (occurrence: None)
  Receive Date: 20050603
  Receipt Date: 20050513
  Transmission Date: 20051028
  Serious: Yes (Hospitalization)
  Sender: FDA-Public Use
  Company Number: DE-GLAXOSMITHKLINE-D0046596A

PATIENT
  Age: 2 Year
  Sex: Female
  Weight: 10 kg

DRUGS (4)
  1. LAMICTAL [Suspect]
     Dosage: 175MG PER DAY
     Route: 048
     Dates: start: 20040512, end: 20050202
  2. OSPOLOT [Concomitant]
     Indication: EPILEPSY
     Dosage: 25MG THREE TIMES PER DAY
     Route: 048
     Dates: start: 20050108, end: 20050202
  3. ETHOSUXIMIDE [Concomitant]
     Indication: EPILEPSY
     Dosage: 1.5ML THREE TIMES PER DAY
     Route: 048
     Dates: start: 20040401, end: 20050401
  4. KEPPRA [Concomitant]
     Indication: EPILEPSY
     Dosage: 3ML PER DAY
     Route: 048
     Dates: start: 20041110, end: 20050106

REACTIONS (18)
  - ANOREXIA [None]
  - ANTICONVULSANT DRUG LEVEL ABOVE THERAPEUTIC [None]
  - APATHY [None]
  - COUGH [None]
  - DEHYDRATION [None]
  - DIARRHOEA [None]
  - DRUG HYPERSENSITIVITY [None]
  - ENCEPHALOPATHY [None]
  - EXANTHEM [None]
  - FATIGUE [None]
  - GASTROENTERITIS [None]
  - GENERAL PHYSICAL HEALTH DETERIORATION [None]
  - INFECTION [None]
  - LIVER DISORDER [None]
  - OLIGODIPSIA [None]
  - OVERDOSE [None]
  - PYREXIA [None]
  - SPUTUM DISCOLOURED [None]
